FAERS Safety Report 22061206 (Version 1)
Quarter: 2023Q1

REPORT INFORMATION
  Report Type: Spontaneous
  Country: ES (occurrence: ES)
  Receive Date: 20230303
  Receipt Date: 20230303
  Transmission Date: 20230417
  Serious: Yes (Other)
  Sender: FDA-Public Use
  Company Number: None

PATIENT
  Sex: Male

DRUGS (1)
  1. PYLERA [Suspect]
     Active Substance: BISMUTH SUBCITRATE POTASSIUM\METRONIDAZOLE\TETRACYCLINE HYDROCHLORIDE
     Indication: Helicobacter infection
     Dosage: 1/6 HOURS
     Dates: start: 20221216

REACTIONS (5)
  - Dyspnoea [Unknown]
  - Dysphagia [Unknown]
  - Angioedema [Unknown]
  - Dysphonia [Unknown]
  - Erythema [Unknown]

NARRATIVE: CASE EVENT DATE: 20221216
